FAERS Safety Report 17535919 (Version 8)
Quarter: 2023Q2

REPORT INFORMATION
  Report Type: Report from Study
  Country: CA (occurrence: None)
  Receive Date: 20200313
  Receipt Date: 20230622
  Transmission Date: 20230721
  Serious: Yes (Hospitalization, Other)
  Sender: FDA-Public Use
  Company Number: CA-ORION CORPORATION ORION PHARMA-TREX2020-1300

PATIENT
  Age: 74 Year
  Sex: Female
  Weight: 90 kg

DRUGS (43)
  1. METHOTREXATE [Suspect]
     Active Substance: METHOTREXATE
     Indication: Product used for unknown indication
  2. ACTEMRA [Suspect]
     Active Substance: TOCILIZUMAB
     Indication: Rheumatoid arthritis
     Dosage: MONTHLY
  3. ACTEMRA [Suspect]
     Active Substance: TOCILIZUMAB
  4. ACTEMRA [Suspect]
     Active Substance: TOCILIZUMAB
  5. ACTEMRA [Suspect]
     Active Substance: TOCILIZUMAB
  6. ACTEMRA [Suspect]
     Active Substance: TOCILIZUMAB
     Dosage: MONTHLY
  7. ACTEMRA [Suspect]
     Active Substance: TOCILIZUMAB
     Dosage: MONTHLY
  8. ACTEMRA [Suspect]
     Active Substance: TOCILIZUMAB
     Dosage: MONTHLY
  9. ACTEMRA [Suspect]
     Active Substance: TOCILIZUMAB
     Dosage: MONTHLY
  10. ACTEMRA [Suspect]
     Active Substance: TOCILIZUMAB
  11. ACTEMRA [Suspect]
     Active Substance: TOCILIZUMAB
  12. RITUXIMAB [Suspect]
     Active Substance: RITUXIMAB
     Indication: Rheumatoid arthritis
  13. RITUXIMAB [Suspect]
     Active Substance: RITUXIMAB
  14. RITUXIMAB [Suspect]
     Active Substance: RITUXIMAB
  15. RITUXIMAB [Suspect]
     Active Substance: RITUXIMAB
  16. RITUXIMAB [Suspect]
     Active Substance: RITUXIMAB
     Dosage: MONTHLY
  17. RITUXIMAB [Suspect]
     Active Substance: RITUXIMAB
  18. RITUXIMAB [Suspect]
     Active Substance: RITUXIMAB
  19. RITUXIMAB [Suspect]
     Active Substance: RITUXIMAB
  20. ASPIRIN [Concomitant]
     Active Substance: ASPIRIN
  21. ACTONEL [Concomitant]
     Active Substance: RISEDRONATE SODIUM
  22. ALENDRONATE SODIUM;VITAMIN D [Concomitant]
  23. CALCIUM [Concomitant]
     Active Substance: CALCIUM
  24. DIPHENHYDRAMINE HYDROCHLORIDE [Concomitant]
     Active Substance: DIPHENHYDRAMINE HYDROCHLORIDE
     Indication: Premedication
  25. MAGNESIUM [Concomitant]
     Active Substance: MAGNESIUM
  26. METHYLPREDNISOLONE [Concomitant]
     Active Substance: METHYLPREDNISOLONE
     Indication: Premedication
  27. MICARDIS [Concomitant]
     Active Substance: TELMISARTAN
  28. MICARDIS [Concomitant]
     Active Substance: TELMISARTAN
     Route: 048
  29. MICARDIS [Concomitant]
     Active Substance: TELMISARTAN
     Route: 048
  30. MORPHINE [Concomitant]
     Active Substance: MORPHINE
  31. MORPHINE [Concomitant]
     Active Substance: MORPHINE
     Route: 065
  32. PREDNISONE [Concomitant]
     Active Substance: PREDNISONE
  33. PREDNISONE [Concomitant]
     Active Substance: PREDNISONE
  34. ZYLOPRIM [Concomitant]
     Active Substance: ALLOPURINOL
  35. ZYLOPRIM [Concomitant]
     Active Substance: ALLOPURINOL
     Route: 048
  36. ZYLOPRIM [Concomitant]
     Active Substance: ALLOPURINOL
     Route: 048
  37. ACETAMINOPHEN [Concomitant]
     Active Substance: ACETAMINOPHEN
     Indication: Premedication
  38. ACETAMINOPHEN [Concomitant]
     Active Substance: ACETAMINOPHEN
  39. DENOSUMAB [Concomitant]
     Active Substance: DENOSUMAB
  40. DENOSUMAB [Concomitant]
     Active Substance: DENOSUMAB
  41. RANITIDINE [Concomitant]
     Active Substance: RANITIDINE
  42. RISEDRONATE SODIUM [Concomitant]
     Active Substance: RISEDRONATE SODIUM
  43. ALENDRONATE SODIUM\CHOLECALCIFEROL [Concomitant]
     Active Substance: ALENDRONATE SODIUM\CHOLECALCIFEROL

REACTIONS (31)
  - Drug ineffective [Not Recovered/Not Resolved]
  - Abdominal distension [Not Recovered/Not Resolved]
  - Arthralgia [Not Recovered/Not Resolved]
  - Back pain [Not Recovered/Not Resolved]
  - Blood cholesterol increased [Not Recovered/Not Resolved]
  - Blood pressure diastolic increased [Not Recovered/Not Resolved]
  - Blood pressure increased [Not Recovered/Not Resolved]
  - Blood pressure systolic abnormal [Not Recovered/Not Resolved]
  - Blood pressure systolic increased [Not Recovered/Not Resolved]
  - Body temperature decreased [Not Recovered/Not Resolved]
  - Cellulitis [Not Recovered/Not Resolved]
  - Contusion [Not Recovered/Not Resolved]
  - Erythema [Not Recovered/Not Resolved]
  - Fall [Not Recovered/Not Resolved]
  - Family stress [Not Recovered/Not Resolved]
  - Hypotension [Not Recovered/Not Resolved]
  - Infected skin ulcer [Not Recovered/Not Resolved]
  - Joint injury [Not Recovered/Not Resolved]
  - Joint swelling [Not Recovered/Not Resolved]
  - Lower respiratory tract infection [Not Recovered/Not Resolved]
  - Pain in extremity [Not Recovered/Not Resolved]
  - Productive cough [Not Recovered/Not Resolved]
  - Skin laceration [Not Recovered/Not Resolved]
  - Weight decreased [Not Recovered/Not Resolved]
  - Weight increased [Not Recovered/Not Resolved]
  - Meniscus injury [Not Recovered/Not Resolved]
  - Tremor [Not Recovered/Not Resolved]
  - Oxygen saturation decreased [Not Recovered/Not Resolved]
  - Blood pressure systolic decreased [Not Recovered/Not Resolved]
  - Heart rate decreased [Not Recovered/Not Resolved]
  - Cholecystectomy [Not Recovered/Not Resolved]
